FAERS Safety Report 17758385 (Version 1)
Quarter: 2020Q2

REPORT INFORMATION
  Report Type: Report from Study
  Country: CO (occurrence: CO)
  Receive Date: 20200507
  Receipt Date: 20200507
  Transmission Date: 20200714
  Serious: Yes (Life-Threatening, Hospitalization)
  Sender: FDA-Public Use
  Company Number: NVSC2020CO123838

PATIENT

DRUGS (1)
  1. JADENU [Suspect]
     Active Substance: DEFERASIROX
     Indication: ALOPECIA
     Dosage: 3 DF, QD
     Route: 065

REACTIONS (3)
  - Haemoglobin abnormal [Unknown]
  - Platelet count abnormal [Unknown]
  - Pyrexia [Unknown]
